FAERS Safety Report 6899223-1 (Version None)
Quarter: 2010Q3

REPORT INFORMATION
  Report Type: 
  Country: None (occurrence: None)
  Receive Date: 20100802
  Receipt Date: 20080327
  Transmission Date: 20110219
  Serious: Yes (Other)
  Sender: FDA-Public Use
  Company Number: US-PFIZER INC-2006084935

PATIENT
  Sex: Female
  Weight: 92.1 kg

DRUGS (7)
  1. LYRICA [Suspect]
     Indication: NEUROPATHY PERIPHERAL
     Route: 065
     Dates: start: 20060605, end: 20060608
  2. ALLEGRA [Concomitant]
     Route: 065
  3. NEXIUM [Concomitant]
     Route: 065
  4. SYNTHROID [Concomitant]
     Route: 065
  5. FOSAMAX [Concomitant]
     Route: 065
     Dates: start: 20060604
  6. ANTI-ASTHMATICS [Concomitant]
     Route: 055
  7. MOMETASONE FUROATE [Concomitant]
     Route: 055

REACTIONS (2)
  - AMNESIA [None]
  - FEELING DRUNK [None]
